FAERS Safety Report 8452176-7 (Version None)
Quarter: 2012Q2

REPORT INFORMATION
  Report Type: 
  Country: None (occurrence: None)
  Receive Date: 20120620
  Receipt Date: 20120611
  Transmission Date: 20120825
  Serious: Yes (Other)
  Sender: FDA-Public Use
  Company Number: GB-GLAXOSMITHKLINE-B0807401A

PATIENT
  Age: 64 Year
  Sex: Male

DRUGS (5)
  1. LAMICTAL [Suspect]
     Indication: EPILEPSY
     Route: 048
     Dates: start: 20120512
  2. ADCAL [Concomitant]
  3. PHENYTOIN [Suspect]
     Indication: EPILEPSY
     Route: 065
  4. OMEPRAZOLE [Concomitant]
  5. PHENOBARBITAL TAB [Suspect]
     Indication: EPILEPSY
     Route: 065

REACTIONS (10)
  - FATIGUE [None]
  - DIPLOPIA [None]
  - PHOTOPSIA [None]
  - HEADACHE [None]
  - VISION BLURRED [None]
  - LACRIMATION INCREASED [None]
  - VITREOUS DETACHMENT [None]
  - DRY MOUTH [None]
  - EYELID OEDEMA [None]
  - VISUAL IMPAIRMENT [None]
